FAERS Safety Report 23504650 (Version 1)
Quarter: 2024Q1

REPORT INFORMATION
  Report Type: Spontaneous
  Country: US (occurrence: US)
  Receive Date: 20240209
  Receipt Date: 20240209
  Transmission Date: 20240410
  Serious: Yes (Hospitalization, Other)
  Sender: FDA-Public Use
  Company Number: US-STRIDES ARCOLAB LIMITED-2023SP012594

PATIENT
  Age: 57 Year
  Sex: Female

DRUGS (11)
  1. TACROLIMUS [Suspect]
     Active Substance: TACROLIMUS
     Indication: Immunosuppressant drug therapy
     Dosage: UNK
     Route: 048
     Dates: start: 2006
  2. TACROLIMUS [Suspect]
     Active Substance: TACROLIMUS
     Indication: Lung transplant
  3. PREDNISOLONE [Suspect]
     Active Substance: PREDNISOLONE
     Indication: Immunosuppressant drug therapy
     Dosage: 5 MILLIGRAM/DAY
     Route: 065
     Dates: start: 2006
  4. PREDNISOLONE [Suspect]
     Active Substance: PREDNISOLONE
     Indication: Lung transplant
  5. MYCOPHENOLATE MOFETIL [Suspect]
     Active Substance: MYCOPHENOLATE MOFETIL
     Indication: Immunosuppressant drug therapy
     Dosage: 250 MILLIGRAM, BID
     Route: 048
     Dates: start: 2006
  6. MYCOPHENOLATE MOFETIL [Suspect]
     Active Substance: MYCOPHENOLATE MOFETIL
     Indication: Lung transplant
  7. LAPINE T-LYMPHOCYTE IMMUNE GLOBULIN [Suspect]
     Active Substance: LAPINE T-LYMPHOCYTE IMMUNE GLOBULIN
     Indication: Immunosuppressant drug therapy
     Dosage: UNK (FIRST COURSE)
     Route: 065
     Dates: start: 200603
  8. LAPINE T-LYMPHOCYTE IMMUNE GLOBULIN [Suspect]
     Active Substance: LAPINE T-LYMPHOCYTE IMMUNE GLOBULIN
     Indication: Lung transplant
     Dosage: UNK (SECOND COURSE)
     Route: 065
     Dates: start: 201505
  9. LAPINE T-LYMPHOCYTE IMMUNE GLOBULIN [Suspect]
     Active Substance: LAPINE T-LYMPHOCYTE IMMUNE GLOBULIN
     Dosage: UNK (THIRD COURSE)
     Route: 065
     Dates: start: 201711
  10. CILGAVIMAB\TIXAGEVIMAB [Suspect]
     Active Substance: CILGAVIMAB\TIXAGEVIMAB
     Indication: Pyrexia
     Dosage: UNK
     Route: 065
     Dates: start: 20220429
  11. CILGAVIMAB\TIXAGEVIMAB [Suspect]
     Active Substance: CILGAVIMAB\TIXAGEVIMAB
     Indication: Myalgia

REACTIONS (5)
  - Nephropathy toxic [Unknown]
  - Cytomegalovirus infection [Recovered/Resolved]
  - Gastroenteritis norovirus [Unknown]
  - Epstein-Barr viraemia [Unknown]
  - Off label use [Unknown]

NARRATIVE: CASE EVENT DATE: 20061201
